FAERS Safety Report 20042884 (Version 1)
Quarter: 2021Q4

REPORT INFORMATION
  Report Type: Spontaneous
  Country: US (occurrence: US)
  Receive Date: 20211108
  Receipt Date: 20211108
  Transmission Date: 20220303
  Serious: Yes (Death)
  Sender: FDA-Public Use
  Company Number: US-NOVARTISPH-NVSC2021US254355

PATIENT
  Age: 64 Year
  Sex: Male

DRUGS (1)
  1. MEKINIST [Suspect]
     Active Substance: TRAMETINIB DIMETHYL SULFOXIDE
     Indication: Brain neoplasm malignant
     Dosage: 2 MG, QD
     Route: 048
     Dates: start: 202105, end: 202110

REACTIONS (1)
  - Death [Fatal]

NARRATIVE: CASE EVENT DATE: 20211012
